FAERS Safety Report 18665014 (Version 1)
Quarter: 2020Q4

REPORT INFORMATION
  Report Type: Spontaneous
  Country: DE (occurrence: DE)
  Receive Date: 20201225
  Receipt Date: 20201225
  Transmission Date: 20210114
  Serious: Yes (Hospitalization)
  Sender: FDA-Public Use
  Company Number: DE-TEVA-2020-DE-1860857

PATIENT
  Age: 43 Year
  Sex: Male

DRUGS (5)
  1. RAMIPRIL. [Suspect]
     Active Substance: RAMIPRIL
     Dosage: 5 MILLIGRAM DAILY;  1-0-0-0
  2. BUSPIRON [Concomitant]
     Dosage: 5 MILLIGRAM DAILY;  0-0-1-0
  3. METOPROLOL. [Concomitant]
     Active Substance: METOPROLOL
     Dosage: 47.5 MILLIGRAM DAILY;  0-0-1-0
  4. AMITRIPTYLIN [Suspect]
     Active Substance: AMITRIPTYLINE
     Dosage: 100 MILLIGRAM DAILY;  0-0-1-0
  5. MIRTAZAPIN [Suspect]
     Active Substance: MIRTAZAPINE
     Dosage: 15 MILLIGRAM DAILY;  0-0-1-0

REACTIONS (3)
  - Electrolyte imbalance [Unknown]
  - Flank pain [Unknown]
  - Abdominal pain upper [Unknown]
